FAERS Safety Report 25068237 (Version 3)
Quarter: 2025Q2

REPORT INFORMATION
  Report Type: Spontaneous
  Country: CA (occurrence: CA)
  Receive Date: 20250312
  Receipt Date: 20250509
  Transmission Date: 20250717
  Serious: Yes (Other)
  Sender: PFIZER
  Company Number: CA-PFIZER INC-202500053798

PATIENT
  Age: 54 Year
  Sex: Female

DRUGS (3)
  1. RUXIENCE [Suspect]
     Active Substance: RITUXIMAB-PVVR
     Indication: Urticaria
     Route: 042
     Dates: start: 20210308, end: 20210308
  2. RUXIENCE [Suspect]
     Active Substance: RITUXIMAB-PVVR
     Indication: Lupus nephritis
  3. RUXIENCE [Suspect]
     Active Substance: RITUXIMAB-PVVR
     Indication: Rheumatoid arthritis

REACTIONS (1)
  - Seizure [Unknown]
